FAERS Safety Report 23250274 (Version 1)
Quarter: 2023Q4

REPORT INFORMATION
  Report Type: Spontaneous
  Country: CA (occurrence: CA)
  Receive Date: 20231201
  Receipt Date: 20231201
  Transmission Date: 20240110
  Serious: Yes (Other)
  Sender: FDA-Public Use
  Company Number: CA-ABBVIE-5517228

PATIENT
  Age: 72 Year
  Sex: Female

DRUGS (1)
  1. ZYMAR [Suspect]
     Active Substance: GATIFLOXACIN
     Indication: Product used for unknown indication
     Dosage: OPHTHALMIC SOLUTION
     Route: 047
     Dates: start: 202311

REACTIONS (2)
  - Cataract [Unknown]
  - Vitreous floaters [Not Recovered/Not Resolved]

NARRATIVE: CASE EVENT DATE: 20231101
